FAERS Safety Report 7315762-3 (Version None)
Quarter: 2011Q1

REPORT INFORMATION
  Report Type: 
  Country: None (occurrence: None)
  Receive Date: 20110225
  Receipt Date: 20110224
  Transmission Date: 20110831
  Serious: Yes (Other)
  Sender: FDA-Public Use
  Company Number: JP-BRACCO-004545

PATIENT
  Age: 65 Year
  Sex: Female

DRUGS (3)
  1. IOPAMIDOL [Suspect]
     Indication: CORONARY ARTERY DISEASE
     Route: 042
     Dates: start: 20110126, end: 20110126
  2. LIVALO [Concomitant]
     Route: 048
     Dates: start: 20110127
  3. IOPAMIDOL [Suspect]
     Indication: ARTERIOGRAM CORONARY
     Route: 042
     Dates: start: 20110126, end: 20110126

REACTIONS (1)
  - RHABDOMYOLYSIS [None]
